FAERS Safety Report 8115179-8 (Version None)
Quarter: 2012Q1

REPORT INFORMATION
  Report Type: 
  Country: None (occurrence: None)
  Receive Date: 20120201
  Receipt Date: 20120116
  Transmission Date: 20120608
  Serious: Yes (Other)
  Sender: FDA-Public Use
  Company Number: FK201200173

PATIENT

DRUGS (11)
  1. VECURONIUM (VECURONIUM) (VECURONIUM) [Concomitant]
  2. MILRINONE (MILRINONE) (MILRINONE) [Concomitant]
  3. ALBUMIN (ALBUMIN) (ALBUMIN) [Concomitant]
  4. CALCIUM GLUCONATE [Concomitant]
  5. ESMOLOL (ESMOLOL) (ESMOLOL) [Suspect]
     Indication: PRODUCT USED FOR UNKNOWN INDICATION
  6. MAGNESIUM (MAGNESIUM) (MAGNESIUM) [Concomitant]
  7. LIDOCAINE [Suspect]
     Indication: VENTRICULAR TACHYCARDIA
     Dosage: 1MG/KG
  8. POTASSIUM (POTASSIUM) (POTASSIUM) [Concomitant]
  9. FENTANYL [Concomitant]
  10. DOPAMINE (DOPAMINE) (DOPAMINE) [Concomitant]
  11. AMIODARONE HCL [Concomitant]

REACTIONS (4)
  - DRUG INTERACTION [None]
  - PUPIL FIXED [None]
  - AREFLEXIA [None]
  - MOVEMENT DISORDER [None]
